FAERS Safety Report 10574671 (Version 6)
Quarter: 2014Q4

REPORT INFORMATION
  Report Type: Spontaneous
  Country: BR (occurrence: BR)
  Receive Date: 20141110
  Receipt Date: 20141224
  Transmission Date: 20150529
  Serious: Yes (Hospitalization, Other)
  Sender: FDA-Public Use
  Company Number: BR-PFIZER INC-2014301860

PATIENT
  Age: 71 Year
  Sex: Female
  Weight: 73 kg

DRUGS (6)
  1. PRISTIQ EXTENDED RELEASE [Suspect]
     Active Substance: DESVENLAFAXINE SUCCINATE
     Dosage: 150 MG (1 TABLET OF STRENGTH 50 MG + 1 TABLET OF STRENGTH 100 MG), 1X/DAY
     Route: 048
     Dates: start: 2014, end: 20141122
  2. CAPTOPRIL. [Concomitant]
     Active Substance: CAPTOPRIL
     Indication: BLOOD PRESSURE ABNORMAL
     Dosage: HALF A TABLET IN THE MORNING AND HALF A TABLET AT NIGHT
  3. PRISTIQ EXTENDED RELEASE [Suspect]
     Active Substance: DESVENLAFAXINE SUCCINATE
     Indication: DEPRESSION
     Dosage: 50 MG, 1X/DAY
     Route: 048
     Dates: start: 201401, end: 2014
  4. MIDAZOLAM [Concomitant]
     Active Substance: MIDAZOLAM\MIDAZOLAM HYDROCHLORIDE
     Indication: SLEEP DISORDER THERAPY
     Dosage: 1 TABLET STRENGTH 15 MG AT NIGHT
  5. PRISTIQ EXTENDED RELEASE [Suspect]
     Active Substance: DESVENLAFAXINE SUCCINATE
     Dosage: 100 MG, 1X/DAY
     Route: 048
     Dates: start: 2014, end: 2014
  6. PROLOPA [Concomitant]
     Active Substance: BENSERAZIDE\LEVODOPA
     Indication: PARKINSON^S DISEASE
     Dosage: 0.5 DF, EVERY 4 HRS
     Dates: start: 2009

REACTIONS (5)
  - Chest pain [Recovering/Resolving]
  - Anaemia [Recovering/Resolving]
  - Intentional product misuse [Recovering/Resolving]
  - Drug ineffective [Recovering/Resolving]
  - Gastrointestinal neoplasm [Recovering/Resolving]

NARRATIVE: CASE EVENT DATE: 2014
